FAERS Safety Report 7494844-X (Version None)
Quarter: 2011Q2

REPORT INFORMATION
  Report Type: 
  Country: None (occurrence: None)
  Receive Date: 20110520
  Receipt Date: 20110512
  Transmission Date: 20111010
  Serious: Yes (Death, Hospitalization)
  Sender: FDA-Public Use
  Company Number: D0070916A

PATIENT
  Sex: Female
  Weight: 17 kg

DRUGS (2)
  1. VIANI [Suspect]
     Dosage: 150MCG TWICE PER DAY
     Route: 055
     Dates: start: 20100501
  2. AMOXICILLIN [Concomitant]
     Indication: OTITIS MEDIA
     Route: 065

REACTIONS (18)
  - BRAIN HERNIATION [None]
  - ACIDOSIS [None]
  - MUSCLE TWITCHING [None]
  - MUSCULOSKELETAL STIFFNESS [None]
  - PYREXIA [None]
  - STATUS EPILEPTICUS [None]
  - GASTROENTERITIS [None]
  - DIARRHOEA [None]
  - LOSS OF CONSCIOUSNESS [None]
  - AMINO ACID LEVEL DECREASED [None]
  - ASTHENIA [None]
  - HYPOGLYCAEMIA [None]
  - BRAIN OEDEMA [None]
  - METABOLIC DISORDER [None]
  - ELECTROLYTE IMBALANCE [None]
  - VOMITING [None]
  - DEHYDRATION [None]
  - HYPOTENSION [None]
